FAERS Safety Report 9550843 (Version 2)
Quarter: 2014Q2

REPORT INFORMATION
  Report Type: Spontaneous
  Country: US (occurrence: US)
  Receive Date: 20130924
  Receipt Date: 20140402
  Transmission Date: 20141212
  Serious: No
  Sender: FDA-Public Use
  Company Number: US-SANOFI-AVENTIS-2013SA058676

PATIENT
  Age: 54 Year
  Sex: Female

DRUGS (2)
  1. AUBAGIO [Suspect]
     Indication: MULTIPLE SCLEROSIS
     Route: 048
     Dates: start: 20130429, end: 20130801
  2. AUBAGIO [Suspect]
     Indication: MULTIPLE SCLEROSIS
     Route: 048
     Dates: start: 20130429, end: 20130801

REACTIONS (11)
  - Drug hypersensitivity [Unknown]
  - Pain [Unknown]
  - Bone pain [Unknown]
  - Micturition urgency [Unknown]
  - Dysuria [Unknown]
  - Abdominal pain lower [Unknown]
  - Blood urine present [Unknown]
  - White blood cells urine positive [Unknown]
  - Nausea [Unknown]
  - Diarrhoea [Unknown]
  - Liver function test abnormal [Unknown]
